FAERS Safety Report 25051714 (Version 1)
Quarter: 2025Q1

REPORT INFORMATION
  Report Type: Spontaneous
  Country: CA (occurrence: CA)
  Receive Date: 20250307
  Receipt Date: 20250307
  Transmission Date: 20250409
  Serious: Yes (Other)
  Sender: COVIS PHARMA GMBH
  Company Number: CA-AMAGP-2025COV00283

PATIENT
  Age: 77 Year
  Sex: Female

DRUGS (12)
  1. OMNARIS [Suspect]
     Active Substance: CICLESONIDE
     Route: 045
  2. ALOGLIPTIN BENZOATE\METFORMIN HYDROCHLORIDE [Suspect]
     Active Substance: ALOGLIPTIN BENZOATE\METFORMIN HYDROCHLORIDE
  3. ROFLUMILAST [Suspect]
     Active Substance: ROFLUMILAST
  4. DEXILANT [Suspect]
     Active Substance: DEXLANSOPRAZOLE
  5. EDARBYCLOR [Suspect]
     Active Substance: AZILSARTAN KAMEDOXOMIL\CHLORTHALIDONE
  6. ENTYVIO [Suspect]
     Active Substance: VEDOLIZUMAB
     Indication: Colitis ulcerative
  7. FIBRINOGEN [Suspect]
     Active Substance: FIBRINOGEN HUMAN
  8. ONDANSETRON [Suspect]
     Active Substance: ONDANSETRON
  9. PANTOPRAZOLE SODIUM [Suspect]
     Active Substance: PANTOPRAZOLE SODIUM
  10. PIOGLITAZONE HYDROCHLORIDE [Suspect]
     Active Substance: PIOGLITAZONE HYDROCHLORIDE
  11. PANTOPRAZOLE MAGNESIUM [Suspect]
     Active Substance: PANTOPRAZOLE MAGNESIUM
  12. ULORIC [Suspect]
     Active Substance: FEBUXOSTAT

REACTIONS (3)
  - Disease recurrence [Recovered/Resolved]
  - Hypertension [Recovered/Resolved]
  - Pneumonia [Recovered/Resolved]
